FAERS Safety Report 25917340 (Version 2)
Quarter: 2025Q4

REPORT INFORMATION
  Report Type: Report from Study
  Country: US (occurrence: US)
  Receive Date: 20251014
  Receipt Date: 20251014
  Transmission Date: 20260117
  Serious: Yes (Hospitalization, Other)
  Sender: BAYER HEALTHCARE PHARMACEUTICALS INC.
  Company Number: US-BAYER-2025A130218

PATIENT
  Age: 97 Year
  Sex: Male

DRUGS (1)
  1. NUBEQA [Suspect]
     Active Substance: DAROLUTAMIDE
     Indication: Hormone-refractory prostate cancer
     Dosage: 300 MG, BID
     Route: 048
     Dates: start: 202509

REACTIONS (15)
  - Balance disorder [Not Recovered/Not Resolved]
  - Fatigue [Not Recovered/Not Resolved]
  - Dizziness [Not Recovered/Not Resolved]
  - Fall [Not Recovered/Not Resolved]
  - Haemorrhage [Not Recovered/Not Resolved]
  - Asthenia [Not Recovered/Not Resolved]
  - Hospitalisation [Not Recovered/Not Resolved]
  - Surgery [None]
  - Feeling abnormal [Not Recovered/Not Resolved]
  - Metastases to spine [None]
  - Metastases to adrenals [None]
  - Metastases to reproductive organ [None]
  - Renal disorder [None]
  - Inappropriate schedule of product administration [None]
  - Product use issue [None]

NARRATIVE: CASE EVENT DATE: 20250901
